FAERS Safety Report 4569544-6 (Version None)
Quarter: 2005Q1

REPORT INFORMATION
  Report Type: 
  Country: None (occurrence: None)
  Receive Date: 20050201
  Receipt Date: 20050119
  Transmission Date: 20050727
  Serious: No
  Sender: FDA-Public Use
  Company Number: 05H-087-0288301-00

PATIENT
  Age: 65 Year
  Sex: Male

DRUGS (1)
  1. PENTAZOCINE LACTATE [Suspect]
     Dosage: INJECTION
     Dates: start: 20020701

REACTIONS (2)
  - BLOOD PRESSURE DECREASED [None]
  - CEREBRAL INFARCTION [None]
